FAERS Safety Report 20958171 (Version 1)
Quarter: 2022Q2

REPORT INFORMATION
  Report Type: Spontaneous
  Country: US (occurrence: US)
  Receive Date: 20220614
  Receipt Date: 20220614
  Transmission Date: 20220721
  Serious: No
  Sender: FDA-Public Use
  Company Number: US-PFM-2021-05669

PATIENT
  Age: 2 Day
  Sex: Female

DRUGS (6)
  1. PROPRANOLOL [Suspect]
     Active Substance: PROPRANOLOL HYDROCHLORIDE
     Indication: PHACES syndrome
     Dosage: 0.5 MG/KG, QD (1/DAY)
     Route: 065
  2. PROPRANOLOL [Suspect]
     Active Substance: PROPRANOLOL HYDROCHLORIDE
     Dosage: 1 MG/KG, QD (1/DAY)
     Route: 065
  3. PROPRANOLOL [Suspect]
     Active Substance: PROPRANOLOL HYDROCHLORIDE
     Dosage: 2 MG/KG, QD (1/DAY)
     Route: 065
  4. PROPRANOLOL [Suspect]
     Active Substance: PROPRANOLOL HYDROCHLORIDE
     Dosage: 3 MG/KG, QD (1/DAY)
     Route: 065
  5. PREDNISOLONE [Concomitant]
     Active Substance: PREDNISOLONE
     Indication: PHACES syndrome
     Dosage: 2 MG/KG, QD (1/DAY)
     Route: 065
  6. TIMOLOL [Concomitant]
     Active Substance: TIMOLOL
     Indication: PHACES syndrome
     Dosage: UNK
     Route: 065

REACTIONS (5)
  - Stridor [Unknown]
  - Condition aggravated [Unknown]
  - Product administered to patient of inappropriate age [Unknown]
  - Product use issue [Unknown]
  - Off label use [Unknown]
